FAERS Safety Report 4782964-X (Version None)
Quarter: 2005Q3

REPORT INFORMATION
  Report Type: 
  Country: None (occurrence: None)
  Receive Date: 20050928
  Receipt Date: 20050928
  Transmission Date: 20060218
  Serious: Yes (Other)
  Sender: FDA-Public Use
  Company Number: None

PATIENT
  Age: 58 Year
  Sex: Male
  Weight: 92.4 kg

DRUGS (17)
  1. SEVELAMER 800MG [Suspect]
     Indication: HAEMODIALYSIS
     Dosage: 1600MG THREE TIMES DAILY PO
     Route: 048
     Dates: start: 20050209, end: 20050514
  2. SEVELAMER 800MG [Suspect]
     Indication: RENAL FAILURE CHRONIC
     Dosage: 1600MG THREE TIMES DAILY PO
     Route: 048
     Dates: start: 20050209, end: 20050514
  3. ALBUTEROL/IPRATROP [Concomitant]
  4. BACITRACIN/GM [Concomitant]
  5. DILTIAZEM [Concomitant]
  6. DIPHENHYDRAMINE HCL [Concomitant]
  7. FOLIC ACID [Concomitant]
  8. LACTULOSE [Concomitant]
  9. MULTI-VITAMIN [Concomitant]
  10. OMEPRAZOLE [Concomitant]
  11. SAQUINAVIR [Concomitant]
  12. SILDENAFIL CITRATE [Concomitant]
  13. SULFAMETHOXAZOLE + TRIMETHOPRIM [Concomitant]
  14. TENOFOVIR DISOPROXIL FUMARATE [Concomitant]
  15. VITAMIN B COMPLEX CAP [Concomitant]
  16. COUMADIN [Concomitant]
  17. ZIDOVUDINE [Concomitant]

REACTIONS (4)
  - ABDOMINAL PAIN [None]
  - BLOOD AMYLASE INCREASED [None]
  - GASTROINTESTINAL DISORDER [None]
  - LIPASE INCREASED [None]
